FAERS Safety Report 14454399 (Version 1)
Quarter: 2018Q1

REPORT INFORMATION
  Report Type: Spontaneous
  Country: US (occurrence: US)
  Receive Date: 20180128
  Receipt Date: 20180128
  Transmission Date: 20180509
  Serious: Yes (Other)
  Sender: FDA-Public Use
  Company Number: None

PATIENT
  Sex: Female
  Weight: 45 kg

DRUGS (14)
  1. BIOTIN [Concomitant]
     Active Substance: BIOTIN
  2. SIMVASTATIN. [Concomitant]
     Active Substance: SIMVASTATIN
  3. CLONAZEPAM. [Concomitant]
     Active Substance: CLONAZEPAM
  4. NEOMYCIN AND POLYMYXIN B SULFATES AND DEXAMETHASON OPHTHALMIC OINTMENT [Suspect]
     Active Substance: DEXAMETHASONE\NEOMYCIN SULFATE\POLYMYXIN B
     Indication: CURETTING OF CHALAZION
     Dosage: QUANTITY:1 OINTMENT;?
     Route: 047
     Dates: start: 20180125, end: 20180127
  5. CALCIUM [Concomitant]
     Active Substance: CALCIUM
  6. NEOMYCIN AND POLYMYXIN B SULFATES AND DEXAMETHASON OPHTHALMIC OINTMENT [Suspect]
     Active Substance: DEXAMETHASONE\NEOMYCIN SULFATE\POLYMYXIN B
     Indication: POSTOPERATIVE CARE
     Dosage: QUANTITY:1 OINTMENT;?
     Route: 047
     Dates: start: 20180125, end: 20180127
  7. C [Concomitant]
  8. CRANBERRY. [Concomitant]
     Active Substance: CRANBERRY
  9. INISITOL [Concomitant]
  10. LISINOPRIL. [Concomitant]
     Active Substance: LISINOPRIL
  11. GLUCOUSIMIN [Concomitant]
  12. PLAVIX [Concomitant]
     Active Substance: CLOPIDOGREL BISULFATE
  13. ATENOLOL. [Concomitant]
     Active Substance: ATENOLOL
  14. SALMON OIL [Concomitant]
     Active Substance: FISH OIL

REACTIONS (3)
  - Therapy cessation [None]
  - Application site pain [None]
  - Application site pruritus [None]

NARRATIVE: CASE EVENT DATE: 20180127
